FAERS Safety Report 22273193 (Version 1)
Quarter: 2023Q2

REPORT INFORMATION
  Report Type: Report from Study
  Country: US (occurrence: None)
  Receive Date: 20230502
  Receipt Date: 20230502
  Transmission Date: 20230721
  Serious: Yes (Hospitalization)
  Sender: FDA-Public Use
  Company Number: US-Eisai Medical Research-EC-2023-139148

PATIENT
  Age: 60 Year
  Sex: Female
  Weight: 116 kg

DRUGS (9)
  1. LENVIMA [Suspect]
     Active Substance: LENVATINIB
     Indication: Endometrial cancer
     Route: 048
     Dates: start: 20230123, end: 20230418
  2. ASPIRIN [Concomitant]
     Active Substance: ASPIRIN
  3. ACETAMINOPHEN\HYDROCODONE [Concomitant]
     Active Substance: ACETAMINOPHEN\HYDROCODONE
  4. VITAMIN B12 [Concomitant]
     Active Substance: CYANOCOBALAMIN
  5. CELEBREX [Concomitant]
     Active Substance: CELECOXIB
  6. VITAMIN C [Concomitant]
     Active Substance: ASCORBIC ACID
  7. COLLAGEN [Concomitant]
     Active Substance: COLLAGEN
  8. GLUCOSAMINE [Concomitant]
     Active Substance: GLUCOSAMINE
  9. SYNTHROID [Concomitant]
     Active Substance: LEVOTHYROXINE SODIUM

REACTIONS (2)
  - Pancreatitis [Recovering/Resolving]
  - Constipation [Recovering/Resolving]

NARRATIVE: CASE EVENT DATE: 20230401
